FAERS Safety Report 6257720-6 (Version None)
Quarter: 2009Q3

REPORT INFORMATION
  Report Type: 
  Country: None (occurrence: None)
  Receive Date: 20090706
  Receipt Date: 20090626
  Transmission Date: 20100115
  Serious: Yes (Hospitalization)
  Sender: FDA-Public Use
  Company Number: SI-ABBOTT-09P-261-0582610-00

PATIENT
  Age: 19 Year
  Sex: Female

DRUGS (2)
  1. VALPROIC ACID [Suspect]
     Indication: DRUG USE FOR UNKNOWN INDICATION
  2. SODIUM CHLORIDE [Concomitant]
     Indication: HYPOTENSION

REACTIONS (2)
  - CARDIOTOXICITY [None]
  - DRUG TOXICITY [None]
